FAERS Safety Report 8543654 (Version 4)
Quarter: 2013Q1

REPORT INFORMATION
  Report Type: Spontaneous
  Country: US (occurrence: US)
  Receive Date: 20120503
  Receipt Date: 20130130
  Transmission Date: 20140127
  Serious: Yes (Hospitalization)
  Sender: FDA-Public Use
  Company Number: US-BAYER-2012-041943

PATIENT
  Age: 41 Year
  Sex: Female
  Weight: 58.96 kg

DRUGS (6)
  1. YAZ [Suspect]
     Dosage: UNK
     Dates: start: 200703, end: 200710
  2. AUGMENTIN [Concomitant]
     Dosage: UNK
     Dates: start: 20070922
  3. SINGULAIR [Concomitant]
     Dosage: 10 MG, UNK
  4. CLARITIN [Concomitant]
  5. PREVACID [Concomitant]
     Dosage: 30 MG, UNK
  6. AZITHROMYCIN [Concomitant]

REACTIONS (2)
  - Colitis ischaemic [Recovered/Resolved]
  - Injury [None]
